FAERS Safety Report 21063969 (Version 1)
Quarter: 2022Q3

REPORT INFORMATION
  Report Type: Spontaneous
  Country: US (occurrence: None)
  Receive Date: 20220710
  Receipt Date: 20220710
  Transmission Date: 20221027
  Serious: Yes (Hospitalization)
  Sender: FDA-Public Use
  Company Number: None

PATIENT
  Age: 23 Year
  Sex: Female
  Weight: 47.25 kg

DRUGS (1)
  1. .DELTA.8-TETRAHYDROCANNABINOL\CANNABIDIOL\HERBALS [Suspect]
     Active Substance: .DELTA.8-TETRAHYDROCANNABINOL\CANNABIDIOL\HERBALS
     Indication: Sleep disorder
     Dosage: OTHER QUANTITY : 1 SMALL BROWNIE;?
     Route: 048
     Dates: start: 20220708, end: 20220708

REACTIONS (8)
  - Adverse reaction [None]
  - Toxicity to various agents [None]
  - Shock [None]
  - Vision blurred [None]
  - Vomiting [None]
  - Dehydration [None]
  - Altered state of consciousness [None]
  - Dyspnoea [None]

NARRATIVE: CASE EVENT DATE: 20220708
